FAERS Safety Report 19292693 (Version 1)
Quarter: 2021Q2

REPORT INFORMATION
  Report Type: Spontaneous
  Country: US (occurrence: US)
  Receive Date: 20210521
  Receipt Date: 20210521
  Transmission Date: 20210717
  Serious: Yes (Other)
  Sender: FDA-Public Use
  Company Number: None

PATIENT
  Age: 74 Year
  Sex: Female
  Weight: 63 kg

DRUGS (1)
  1. ISOVUE 300 [Suspect]
     Active Substance: IOPAMIDOL
     Dosage: ?          OTHER FREQUENCY:ONCE FOR EXAM;?
     Route: 040

REACTIONS (3)
  - Dizziness [None]
  - Malaise [None]
  - Oral pruritus [None]

NARRATIVE: CASE EVENT DATE: 20210421
